FAERS Safety Report 23302768 (Version 1)
Quarter: 2023Q4

REPORT INFORMATION
  Report Type: Spontaneous
  Country: US (occurrence: US)
  Receive Date: 20231215
  Receipt Date: 20231215
  Transmission Date: 20240110
  Serious: Yes (Death, Hospitalization)
  Sender: FDA-Public Use
  Company Number: US-PFIZER INC-202300443412

PATIENT
  Age: 47 Year
  Sex: Male
  Weight: 64 kg

DRUGS (9)
  1. INLYTA [Suspect]
     Active Substance: AXITINIB
     Indication: Neoplasm malignant
     Dosage: 5 MG, 2X/DAY
  2. ASPIRIN [Concomitant]
     Active Substance: ASPIRIN
     Dosage: ONCE DAILY
  3. DEXAMETHASONE [Concomitant]
     Active Substance: DEXAMETHASONE
     Dosage: 4 MG
  4. GABAPENTIN [Concomitant]
     Active Substance: GABAPENTIN
     Dosage: 100 MG
  5. IMODIUM [Concomitant]
     Active Substance: LOPERAMIDE HYDROCHLORIDE
     Dosage: 2 MG
  6. NEXIUM I.V. [Concomitant]
     Active Substance: ESOMEPRAZOLE SODIUM
     Dosage: 20 MG
  7. OXYCODONE [Concomitant]
     Active Substance: OXYCODONE
     Dosage: 5 MG
  8. KEYTRUDA [Concomitant]
     Active Substance: PEMBROLIZUMAB
     Dosage: 100 MG
  9. LORAZEPAM [Concomitant]
     Active Substance: LORAZEPAM
     Dosage: 1 MG

REACTIONS (1)
  - Death [Fatal]

NARRATIVE: CASE EVENT DATE: 20231206
